FAERS Safety Report 7094369-X (Version None)
Quarter: 2010Q4

REPORT INFORMATION
  Report Type: 
  Country: None (occurrence: None)
  Receive Date: 20101110
  Receipt Date: 20101105
  Transmission Date: 20110411
  Serious: Yes (Hospitalization)
  Sender: FDA-Public Use
  Company Number: KR-SANOFI-AVENTIS-2010SA027668

PATIENT
  Age: 0 Day
  Sex: Male
  Weight: 3.38 kg

DRUGS (2)
  1. LANTUS [Suspect]
     Indication: DIABETIC RELATIVE
     Route: 064
     Dates: end: 20100309
  2. LANTUS [Suspect]
     Route: 064
     Dates: start: 20100310

REACTIONS (3)
  - DRUG EXPOSURE DURING PREGNANCY [None]
  - HYPOGLYCAEMIA [None]
  - JAUNDICE NEONATAL [None]
